FAERS Safety Report 18143674 (Version 5)
Quarter: 2023Q1

REPORT INFORMATION
  Report Type: Report from Study
  Country: US (occurrence: None)
  Receive Date: 20200812
  Receipt Date: 20230210
  Transmission Date: 20230418
  Serious: Yes (Hospitalization, Other)
  Sender: FDA-Public Use
  Company Number: US-ROCHE-2565803

PATIENT
  Age: 80 Year
  Sex: Female
  Weight: 76.8 kg

DRUGS (4)
  1. ATEZOLIZUMAB [Suspect]
     Active Substance: ATEZOLIZUMAB
     Indication: Invasive breast carcinoma
     Dosage: RECENT DOSE OF ATEZOLIZUMAB: 06/FEB/2020
     Route: 042
     Dates: start: 20200116
  2. PERTUZUMAB [Suspect]
     Active Substance: PERTUZUMAB
     Indication: Invasive breast carcinoma
     Dosage: LOADING DOSE OF 840 MG FOLLOWED BY MAINTENANCE DOSE OF 420 MG?RECENT DOSE OF PERTUZUMAB: 06/FEB/2020
     Route: 042
     Dates: start: 20191121, end: 20200206
  3. TRASTUZUMAB [Suspect]
     Active Substance: TRASTUZUMAB
     Indication: Invasive breast carcinoma
     Dosage: LOADING DOSE OF 8 MG.KG FOLLOWED BY MAINTENANCE DOSE OF 6 MG.KG?RECENT DOSE OF TRASTUZUMAB: 06/FEB/2
     Route: 042
     Dates: start: 20191121, end: 20200206
  4. PACLITAXEL [Suspect]
     Active Substance: PACLITAXEL
     Indication: Invasive breast carcinoma
     Dosage: 80MG/M2 IV ON DAYS 1, 8, 15, 22, 29, AND 36?RECENT DOSE OF PACLITAXEL: 13/FEB/2020
     Route: 042
     Dates: start: 20191121

REACTIONS (6)
  - Cholecystitis [Recovering/Resolving]
  - Alanine aminotransferase increased [Recovering/Resolving]
  - Aspartate aminotransferase increased [Recovering/Resolving]
  - Blood alkaline phosphatase increased [Recovering/Resolving]
  - Neutrophil count decreased [Unknown]
  - Diarrhoea [Unknown]

NARRATIVE: CASE EVENT DATE: 20191209
